FAERS Safety Report 12642813 (Version 10)
Quarter: 2017Q1

REPORT INFORMATION
  Report Type: Spontaneous
  Country: US (occurrence: US)
  Receive Date: 20160811
  Receipt Date: 20170303
  Transmission Date: 20170428
  Serious: Yes (Other)
  Sender: FDA-Public Use
  Company Number: PHHY2016US108889

PATIENT
  Sex: Female
  Weight: 68.3 kg

DRUGS (4)
  1. ONDANSETRON [Suspect]
     Active Substance: ONDANSETRON
     Indication: VOMITING IN PREGNANCY
     Dosage: 8 MG, Q8H
     Route: 048
     Dates: start: 20070501, end: 20070531
  2. ZOFRAN ODT [Suspect]
     Active Substance: ONDANSETRON HYDROCHLORIDE
     Indication: VOMITING IN PREGNANCY
     Dosage: 4 MG, Q8H
     Route: 048
     Dates: start: 20070407, end: 20070423
  3. ZOFRAN ODT [Suspect]
     Active Substance: ONDANSETRON HYDROCHLORIDE
     Dosage: 8 MG, Q8H
     Route: 048
     Dates: start: 20070501
  4. ONDANSETRON [Suspect]
     Active Substance: ONDANSETRON
     Dosage: 8 MG, Q8H
     Route: 048
     Dates: start: 20070628, end: 20070728

REACTIONS (6)
  - Pain [Unknown]
  - Anxiety [Unknown]
  - Maternal exposure during pregnancy [Unknown]
  - Emotional distress [Unknown]
  - Premature delivery [Unknown]
  - Product use issue [Unknown]
